FAERS Safety Report 5627799-0 (Version None)
Quarter: 2008Q1

REPORT INFORMATION
  Report Type: 
  Country: None (occurrence: None)
  Receive Date: 20080215
  Receipt Date: 20080214
  Transmission Date: 20080703
  Serious: Yes (Hospitalization)
  Sender: FDA-Public Use
  Company Number: B0508044A

PATIENT
  Age: 72 Year
  Sex: Male

DRUGS (12)
  1. ALLOPURINOL [Suspect]
  2. CO-TRIMOXAZOLE [Suspect]
  3. ONDANSETRON [Suspect]
  4. ACYCLOVIR [Suspect]
     Indication: CHEMOTHERAPY
     Dates: start: 20070622, end: 20071116
  5. PREDNISOLONE [Suspect]
     Indication: CHEMOTHERAPY
     Dates: start: 20070622, end: 20071116
  6. VINCRISTINE [Suspect]
     Indication: CHEMOTHERAPY
     Dates: start: 20070622, end: 20071116
  7. CYCLOPHOSPHAMIDE [Suspect]
     Indication: CHEMOTHERAPY
     Dates: start: 20070622, end: 20071116
  8. RITUXIMAB [Suspect]
     Indication: CHEMOTHERAPY
     Dates: start: 20070622, end: 20071116
  9. CIPROFLOXACIN [Suspect]
     Indication: CHEMOTHERAPY
     Dates: start: 20070622, end: 20071116
  10. FLUCONAZOLE [Suspect]
     Indication: CHEMOTHERAPY
     Dates: start: 20070622, end: 20071116
  11. LANSOPRAZOLE [Suspect]
  12. ALENDRONATE SODIUM [Suspect]
     Indication: OSTEOPOROSIS
     Dates: start: 20071201

REACTIONS (1)
  - TOXIC SKIN ERUPTION [None]
